FAERS Safety Report 18492762 (Version 1)
Quarter: 2020Q4

REPORT INFORMATION
  Report Type: Report from Study
  Country: US (occurrence: US)
  Receive Date: 20201111
  Receipt Date: 20201111
  Transmission Date: 20210114
  Serious: Yes (Other)
  Sender: FDA-Public Use
  Company Number: US-SHIRE-US201921634AA

PATIENT
  Age: 11 Year
  Sex: Female

DRUGS (1)
  1. HUMAN NORMAL IMMUNOGLOBULIN; LIQUID [Suspect]
     Active Substance: HUMAN IMMUNOGLOBULIN G
     Indication: PRIMARY IMMUNODEFICIENCY SYNDROME
     Dosage: UNK
     Route: 042

REACTIONS (6)
  - Arrhythmia [Unknown]
  - Enzyme abnormality [Not Recovered/Not Resolved]
  - Cyclic vomiting syndrome [Unknown]
  - Diplopia [Unknown]
  - Gait disturbance [Not Recovered/Not Resolved]
  - Arterial disorder [Unknown]

NARRATIVE: CASE EVENT DATE: 20190701
